FAERS Safety Report 4945325-6 (Version None)
Quarter: 2006Q1

REPORT INFORMATION
  Report Type: 
  Country: None (occurrence: None)
  Receive Date: 20060315
  Receipt Date: 20060315
  Transmission Date: 20060701
  Serious: Yes (Life-Threatening)
  Sender: FDA-Public Use
  Company Number: None

PATIENT
  Age: 9 Year
  Sex: Female
  Weight: 15.8759 kg

DRUGS (1)
  1. LINEZOLID [Suspect]
     Indication: NOCARDIOSIS
     Dosage: 10 MG/KG Q8H IV
     Route: 042
     Dates: start: 20051229, end: 20060311

REACTIONS (1)
  - LACTIC ACIDOSIS [None]
